FAERS Safety Report 23521634 (Version 7)
Quarter: 2024Q2

REPORT INFORMATION
  Report Type: Spontaneous
  Country: CA (occurrence: CA)
  Receive Date: 20240214
  Receipt Date: 20240611
  Transmission Date: 20240716
  Serious: Yes (Hospitalization, Other)
  Sender: FDA-Public Use
  Company Number: CA-CELLTRION INC.-2022CA012988

PATIENT

DRUGS (11)
  1. INFLECTRA [Suspect]
     Active Substance: INFLIXIMAB-DYYB
     Indication: Colitis ulcerative
     Dosage: 5 MG/KG WEEKS 0,2,6 THEN EVERY 8 WEEKS
     Route: 042
     Dates: start: 20220721
  2. INFLECTRA [Suspect]
     Active Substance: INFLIXIMAB-DYYB
     Dosage: 5 MG/KG Q 0,2,6 THEN EVERY 8 WEEKS
     Route: 042
     Dates: start: 20220804
  3. INFLECTRA [Suspect]
     Active Substance: INFLIXIMAB-DYYB
     Dosage: 5 MG/KG Q 0,2,6 THEN EVERY 8 WEEKS
     Route: 042
     Dates: start: 20220901
  4. INFLECTRA [Suspect]
     Active Substance: INFLIXIMAB-DYYB
     Dosage: 5 MG/KG Q 0,2,6 THEN EVERY 8 WEEKS
     Route: 042
     Dates: start: 20221220
  5. INFLECTRA [Suspect]
     Active Substance: INFLIXIMAB-DYYB
     Dosage: 550 MG, (5MG/KG), MAINTENANCE EVERY 8 WEEKS
     Route: 042
     Dates: start: 20230214
  6. INFLECTRA [Suspect]
     Active Substance: INFLIXIMAB-DYYB
     Dosage: 550 MG, (5MG/KG), MAINTENANCE EVERY 8 WEEKS
     Route: 042
     Dates: start: 20230411
  7. INFLECTRA [Suspect]
     Active Substance: INFLIXIMAB-DYYB
     Dosage: 505 MG, (5MG/KG) EVERY 8 WEEKS (10 WEEKS AND 1 DAY AFTER LAST TREATMENT)
     Route: 042
     Dates: start: 20230621
  8. INFLECTRA [Suspect]
     Active Substance: INFLIXIMAB-DYYB
     Dosage: 600MG, (PRESCRIBED 5MG/KG, EVERY 8 WEEKS
     Route: 042
     Dates: start: 20231213
  9. INFLECTRA [Suspect]
     Active Substance: INFLIXIMAB-DYYB
     Dosage: 5 MG/KG WEEKS 0,2,6 THEN EVERY 8 WEEKS (500 MG, 15 WEEKS AND 5 DAYS)
     Route: 042
     Dates: start: 20240406
  10. INFLECTRA [Suspect]
     Active Substance: INFLIXIMAB-DYYB
     Dosage: 490 MG, 0,2,6 THEN EVERY 8 WEEKS (AFTER 8 WEEKS AND 2 DAY)
     Route: 042
     Dates: start: 20240603
  11. OZEMPIC [Concomitant]
     Active Substance: SEMAGLUTIDE
     Dosage: UNK

REACTIONS (10)
  - Diarrhoea [Unknown]
  - Fracture [Recovering/Resolving]
  - Fall [Unknown]
  - Headache [Recovered/Resolved]
  - Condition aggravated [Recovered/Resolved]
  - Gastrointestinal infection [Not Recovered/Not Resolved]
  - Off label use [Unknown]
  - Intentional product use issue [Unknown]
  - Incorrect dose administered [Unknown]
  - Inappropriate schedule of product administration [Unknown]

NARRATIVE: CASE EVENT DATE: 20220721
